FAERS Safety Report 16791596 (Version 3)
Quarter: 2020Q2

REPORT INFORMATION
  Report Type: Spontaneous
  Country: US (occurrence: US)
  Receive Date: 20190910
  Receipt Date: 20200515
  Transmission Date: 20200713
  Serious: No
  Sender: FDA-Public Use
  Company Number: US-009507513-1908USA013019

PATIENT
  Age: 18 Year
  Sex: Female
  Weight: 89.34 kg

DRUGS (3)
  1. LOESTRIN NOS [Concomitant]
     Active Substance: ETHINYL ESTRADIOL\NORETHINDRONE ACETATE
     Indication: CONTRACEPTION
     Dosage: ONE
     Route: 048
     Dates: start: 20190624
  2. NEXPLANON [Suspect]
     Active Substance: ETONOGESTREL
     Indication: CONTRACEPTION
     Dosage: 1 ROD
     Route: 059
     Dates: start: 20190814, end: 20190906
  3. LESSINA [Concomitant]
     Active Substance: ETHINYL ESTRADIOL\LEVONORGESTREL
     Indication: CONTRACEPTION
     Dosage: UNK
     Route: 048
     Dates: start: 20190624

REACTIONS (3)
  - Maternal exposure during pregnancy [Recovered/Resolved]
  - Complication associated with device [Recovered/Resolved]
  - Abortion induced [Unknown]

NARRATIVE: CASE EVENT DATE: 20190828
